FAERS Safety Report 7744651-5 (Version None)
Quarter: 2011Q3

REPORT INFORMATION
  Report Type: 
  Country: None (occurrence: None)
  Receive Date: 20110912
  Receipt Date: 20110829
  Transmission Date: 20111222
  Serious: Yes (Hospitalization)
  Sender: FDA-Public Use
  Company Number: PHHY2011MX77196

PATIENT
  Age: 73 Year
  Sex: Female

DRUGS (7)
  1. PHENYTOIN [Concomitant]
     Dosage: 3 DF, DAILY
  2. DAFLON (DIOSMIN/HESPERIDIN) [Concomitant]
     Dosage: 1 DF, DAILY
  3. HYDROCHLOROTHIAZIDE [Concomitant]
     Dosage: 1.5 DF, DAILY
  4. SINTROM [Concomitant]
     Dosage: 1 DF, DAILY
  5. DIOVAN HCT [Suspect]
     Indication: HYPERTENSION
     Dosage: 1 DF (160/12.5), DAILY
     Dates: start: 20080301, end: 20110301
  6. DILTIAZEM [Concomitant]
     Dosage: 2 DF, DAILY
  7. METOPROLOL SUCCINATE [Concomitant]
     Dosage: 2 DF, DAILY

REACTIONS (4)
  - MENINGIOMA [None]
  - COAGULOPATHY [None]
  - CONGESTIVE CARDIOMYOPATHY [None]
  - FLUID RETENTION [None]
